FAERS Safety Report 20872416 (Version 2)
Quarter: 2022Q2

REPORT INFORMATION
  Report Type: Report from Study
  Country: ES (occurrence: ES)
  Receive Date: 20220525
  Receipt Date: 20220622
  Transmission Date: 20220720
  Serious: No
  Sender: FDA-Public Use
  Company Number: ES-TAKEDA-2022TUS033829

PATIENT
  Age: 6 Year
  Sex: Female

DRUGS (9)
  1. TEDUGLUTIDE [Suspect]
     Active Substance: TEDUGLUTIDE
     Indication: Short-bowel syndrome
     Dosage: 0.5 MILLIGRAM, QD
     Route: 042
     Dates: start: 20200122, end: 20200413
  2. TEDUGLUTIDE [Suspect]
     Active Substance: TEDUGLUTIDE
     Indication: Short-bowel syndrome
     Dosage: 0.5 MILLIGRAM, QD
     Route: 042
     Dates: start: 20200122, end: 20200413
  3. TEDUGLUTIDE [Suspect]
     Active Substance: TEDUGLUTIDE
     Indication: Short-bowel syndrome
     Dosage: 0.5 MILLIGRAM, QD
     Route: 042
     Dates: start: 20200122, end: 20200413
  4. TEDUGLUTIDE [Suspect]
     Active Substance: TEDUGLUTIDE
     Indication: Short-bowel syndrome
     Dosage: 0.5 MILLIGRAM, QD
     Route: 042
     Dates: start: 20200122, end: 20200413
  5. TACROLIMUS [Concomitant]
     Active Substance: TACROLIMUS
     Indication: Transplant
     Dosage: 2.80 MILLIGRAM, BID
     Route: 048
     Dates: start: 20211103, end: 20211213
  6. TACROLIMUS [Concomitant]
     Active Substance: TACROLIMUS
     Dosage: 2.4 MILLIGRAM, BID
     Route: 048
     Dates: start: 20211213, end: 20220304
  7. TACROLIMUS [Concomitant]
     Active Substance: TACROLIMUS
     Dosage: 2 MILLIGRAM, BID
     Route: 048
     Dates: start: 20220304
  8. PREDNISONE [Concomitant]
     Active Substance: PREDNISONE
     Indication: Transplant
     Dosage: 20 MILLIGRAM, QD
     Route: 048
     Dates: start: 20211118
  9. PREDNISONE [Concomitant]
     Active Substance: PREDNISONE
     Indication: Post procedural complication

REACTIONS (1)
  - Device malfunction [Recovered/Resolved]

NARRATIVE: CASE EVENT DATE: 20220325
